FAERS Safety Report 7248246-1 (Version None)
Quarter: 2011Q1

REPORT INFORMATION
  Report Type: 
  Country: None (occurrence: None)
  Receive Date: 20110127
  Receipt Date: 20110113
  Transmission Date: 20110831
  Serious: Yes (Other)
  Sender: FDA-Public Use
  Company Number: US-BAYER-2011-007750

PATIENT
  Sex: Female

DRUGS (3)
  1. OCELLA [Suspect]
     Route: 048
  2. YASMIN [Suspect]
  3. YAZ [Suspect]

REACTIONS (3)
  - EMOTIONAL DISTRESS [None]
  - CEREBROVASCULAR ACCIDENT [None]
  - PAIN [None]
